FAERS Safety Report 5780093-X (Version None)
Quarter: 2008Q2

REPORT INFORMATION
  Report Type: 
  Country: None (occurrence: None)
  Receive Date: 20080620
  Receipt Date: 20080609
  Transmission Date: 20081010
  Serious: Yes (Other)
  Sender: FDA-Public Use
  Company Number: CA-NOVOPROD-276503

PATIENT
  Age: 57 Year
  Sex: Female

DRUGS (1)
  1. VAGIFEM [Suspect]
     Indication: ATROPHIC VULVOVAGINITIS
     Dates: start: 20080516, end: 20080602

REACTIONS (7)
  - BACK PAIN [None]
  - DYSPNOEA [None]
  - MIGRAINE WITH AURA [None]
  - OEDEMA PERIPHERAL [None]
  - TACHYCARDIA [None]
  - VAGINAL DISCHARGE [None]
  - VAGINAL ERYTHEMA [None]
